FAERS Safety Report 23201735 (Version 1)
Quarter: 2023Q4

REPORT INFORMATION
  Report Type: Spontaneous
  Country: US (occurrence: US)
  Receive Date: 20231120
  Receipt Date: 20231120
  Transmission Date: 20240110
  Serious: Yes (Hospitalization, Other)
  Sender: FDA-Public Use
  Company Number: US-LUPIN PHARMACEUTICALS INC.-2023-10214

PATIENT
  Age: 21 Year
  Sex: Female

DRUGS (1)
  1. BUPROPION [Suspect]
     Active Substance: BUPROPION
     Indication: Bipolar disorder
     Dosage: UNK (TABLETS)
     Route: 048

REACTIONS (12)
  - Cardiac arrest [Recovered/Resolved]
  - Circulatory collapse [Recovered/Resolved]
  - Electrocardiogram QT prolonged [Recovered/Resolved]
  - Tachycardia [Recovered/Resolved]
  - Hypotension [Recovered/Resolved]
  - Speech disorder [Unknown]
  - Dysarthria [Unknown]
  - Myoclonus [Unknown]
  - Unresponsive to stimuli [Unknown]
  - Drug level increased [Unknown]
  - Intentional overdose [Unknown]
  - Off label use [Unknown]
